FAERS Safety Report 24205481 (Version 1)
Quarter: 2024Q3

REPORT INFORMATION
  Report Type: Spontaneous
  Country: US (occurrence: US)
  Receive Date: 20240813
  Receipt Date: 20240813
  Transmission Date: 20241017
  Serious: No
  Sender: PFIZER
  Company Number: US-PFIZER INC-202400074276

PATIENT
  Age: 14 Year
  Sex: Female

DRUGS (2)
  1. OXBRYTA [Suspect]
     Active Substance: VOXELOTOR
     Dosage: 500MG TAKE 3 TABS BY MOUTH ONCE DAILY
     Route: 048
     Dates: start: 2023
  2. OXBRYTA [Suspect]
     Active Substance: VOXELOTOR
     Dosage: 1000 MG (2 TABLETS) ON MON., TUES., WED., THURS.; 500 MG (1 TABLET) ON FRI., SAT., SUN. ORALLY
     Route: 048
     Dates: start: 20230526

REACTIONS (4)
  - Feeling abnormal [Unknown]
  - Fatigue [Unknown]
  - Diarrhoea [Unknown]
  - Off label use [Unknown]

NARRATIVE: CASE EVENT DATE: 20230101
